FAERS Safety Report 23327695 (Version 1)
Quarter: 2023Q4

REPORT INFORMATION
  Report Type: Spontaneous
  Country: CA (occurrence: CA)
  Receive Date: 20231221
  Receipt Date: 20231221
  Transmission Date: 20240109
  Serious: Yes (Death, Hospitalization)
  Sender: FDA-Public Use
  Company Number: CA-FreseniusKabi-FK202320706

PATIENT
  Age: 80 Year
  Sex: Male

DRUGS (10)
  1. PIPERACILLIN AND TAZOBACTAM [Suspect]
     Active Substance: PIPERACILLIN SODIUM\TAZOBACTAM SODIUM
     Indication: Product used for unknown indication
     Dosage: FOA: POWDER FOR SOLUTION INTRAVENOUS
     Route: 042
  2. ACETAMINOPHEN [Concomitant]
     Active Substance: ACETAMINOPHEN
     Indication: Product used for unknown indication
     Dosage: FOA: NOT SPECIFIED
  3. ACETYLSALICYLIC ACIDENT CTD [Concomitant]
     Indication: Product used for unknown indication
     Dosage: FOA: TABLET (ENTERIC-COATED)
  4. ASCORBIC ACID [Concomitant]
     Active Substance: ASCORBIC ACID
     Indication: Product used for unknown indication
     Dosage: FOA: NOT SPECIFIED
  5. CHOLECALCIFEROL [Concomitant]
     Active Substance: CHOLECALCIFEROL
     Indication: Product used for unknown indication
     Dosage: FOA: NOT SPECIFIED
  6. CYANOCOBALAMIN [Concomitant]
     Active Substance: CYANOCOBALAMIN
     Indication: Product used for unknown indication
     Dosage: FOA: NOT SPECIFIED
  7. HYDROMORPHONE [Concomitant]
     Active Substance: HYDROMORPHONE
     Indication: Product used for unknown indication
     Dosage: FOA: NOT SPECIFIED
  8. MIDAZOLAM HYDROCHLORIDE [Concomitant]
     Active Substance: MIDAZOLAM HYDROCHLORIDE
     Indication: Product used for unknown indication
     Dosage: FOA: SOLUTION INTRAMUSCULAR
  9. PANTOPRAZOLE [Concomitant]
     Active Substance: PANTOPRAZOLE
     Indication: Product used for unknown indication
     Dosage: FOA: NOT SPECIFIED
  10. SENNA [Concomitant]
     Active Substance: SENNA LEAF\SENNOSIDES\SENNOSIDES A AND B
     Indication: Product used for unknown indication
     Dosage: FOA: NOT SPECIFIED

REACTIONS (5)
  - Bacteraemia [Fatal]
  - Clostridium test positive [Fatal]
  - Hypoxia [Fatal]
  - Lymphoma [Fatal]
  - Pneumonia [Fatal]
